FAERS Safety Report 17402626 (Version 1)
Quarter: 2020Q1

REPORT INFORMATION
  Report Type: Spontaneous
  Country: US (occurrence: US)
  Receive Date: 20200210
  Receipt Date: 20200210
  Transmission Date: 20200409
  Serious: Yes (Other)
  Sender: FDA-Public Use
  Company Number: None

PATIENT
  Age: 71 Year
  Sex: Male
  Weight: 68.9 kg

DRUGS (1)
  1. ALBIGLUTIDE [Suspect]
     Active Substance: ALBIGLUTIDE
     Indication: DIABETES MELLITUS
     Dosage: ?          OTHER FREQUENCY:WEEKLY;?
     Route: 058

REACTIONS (9)
  - Adrenal mass [None]
  - Pancreatic atrophy [None]
  - Metastatic neoplasm [None]
  - Metastases to lung [None]
  - Nephrolithiasis [None]
  - Pancreatic neoplasm [None]
  - Hepatic lesion [None]
  - Gastrointestinal wall thickening [None]
  - Ascites [None]

NARRATIVE: CASE EVENT DATE: 20191220
